FAERS Safety Report 8276838-X (Version None)
Quarter: 2012Q2

REPORT INFORMATION
  Report Type: 
  Country: None (occurrence: None)
  Receive Date: 20120412
  Receipt Date: 20120330
  Transmission Date: 20120825
  Serious: Yes (Other)
  Sender: FDA-Public Use
  Company Number: JP-RANBAXY-2011RR-49604

PATIENT
  Age: 67 Year
  Sex: Male
  Weight: 50 kg

DRUGS (16)
  1. TACROLIMUS [Concomitant]
     Indication: PROPHYLAXIS AGAINST TRANSPLANT REJECTION
     Dosage: 0.06 MG/KG/DAY
     Route: 065
  2. ITRACONAZOLE [Interacting]
     Dosage: UNK
     Route: 048
  3. URSODIOL [Concomitant]
     Indication: PRODUCT USED FOR UNKNOWN INDICATION
     Dosage: 600 MG/DAY
     Route: 065
  4. FLUCONAZOLE [Suspect]
     Indication: ANTIFUNGAL PROPHYLAXIS
     Dosage: 200 MG/ DAY
     Route: 065
  5. ITRACONAZOLE [Interacting]
     Indication: ANTIFUNGAL PROPHYLAXIS
     Dosage: 200 MG, BID
     Route: 042
  6. FLUDARABINE PHOSPHATE [Concomitant]
     Indication: CHEMOTHERAPY
     Dosage: 25 MG/M2/DAY
     Route: 065
  7. CIPROFLOXACIN HCL [Concomitant]
     Indication: PRODUCT USED FOR UNKNOWN INDICATION
     Dosage: 300 MG/DAY
     Route: 065
  8. WARFARIN SODIUM [Suspect]
     Indication: DEEP VEIN THROMBOSIS
     Dosage: 2 MG, UNK
     Route: 065
  9. WARFARIN SODIUM [Suspect]
     Dosage: 2 MG/DAY
     Route: 065
  10. HEPARIN [Concomitant]
     Indication: ANTICOAGULANT THERAPY
     Dosage: 400 IU/DAY
     Route: 065
  11. WARFARIN SODIUM [Suspect]
     Dosage: 0.5 MG/DAY
     Route: 065
  12. MELPHALAN HYDROCHLORIDE [Concomitant]
     Indication: CHEMOTHERAPY
     Dosage: 40 MG/M2/DAY
     Route: 065
  13. WARFARIN SODIUM [Suspect]
     Dosage: 1 MG/DAY
     Route: 065
  14. SULFAMETHOXAZOLE AND TRIMETHOPRIM [Concomitant]
     Indication: PROPHYLAXIS
     Dosage: 400MG/DAY-80 MG/DAY
     Route: 065
  15. ACYCLOVIR [Concomitant]
     Indication: PRODUCT USED FOR UNKNOWN INDICATION
     Dosage: 1000 MG/DAY
     Route: 065
  16. LANSOPRAZOLE [Concomitant]
     Indication: PRODUCT USED FOR UNKNOWN INDICATION
     Dosage: 30 MG/DAY
     Route: 065

REACTIONS (2)
  - DRUG LEVEL INCREASED [None]
  - DRUG INTERACTION [None]
